FAERS Safety Report 10197996 (Version 5)
Quarter: 2015Q2

REPORT INFORMATION
  Report Type: Spontaneous
  Country: US (occurrence: US)
  Receive Date: 20140527
  Receipt Date: 20150413
  Transmission Date: 20150821
  Serious: Yes (Hospitalization, Other)
  Sender: FDA-Public Use
  Company Number: US-009507513-1405USA008506

PATIENT
  Sex: Female
  Weight: 61.5 kg

DRUGS (2)
  1. FOSAMAX [Suspect]
     Active Substance: ALENDRONATE SODIUM
     Indication: OSTEOPOROSIS
     Dosage: 70 MG, QW
     Route: 048
     Dates: start: 20060420, end: 20080228
  2. ALENDRONATE SODIUM. [Suspect]
     Active Substance: ALENDRONATE SODIUM
     Indication: OSTEOPOROSIS
     Dosage: 70 MG, UNK
     Route: 048
     Dates: start: 20080229, end: 20130412

REACTIONS (14)
  - Biopsy breast [Unknown]
  - Intramedullary rod insertion [Unknown]
  - Skin abrasion [Unknown]
  - Stress fracture [Unknown]
  - Intramedullary rod insertion [Unknown]
  - Medical device removal [Unknown]
  - Intramedullary rod insertion [Unknown]
  - Debridement [Unknown]
  - Hypokalaemia [Unknown]
  - Hysterectomy [Unknown]
  - Muscular weakness [Unknown]
  - Musculoskeletal pain [Unknown]
  - Femur fracture [Unknown]
  - Femur fracture [Recovering/Resolving]

NARRATIVE: CASE EVENT DATE: 2013
